FAERS Safety Report 24163162 (Version 2)
Quarter: 2024Q3

REPORT INFORMATION
  Report Type: Report from Study
  Country: US (occurrence: US)
  Receive Date: 20240801
  Receipt Date: 20240820
  Transmission Date: 20241016
  Serious: Yes (Other)
  Sender: AMERICAN REGENT
  Company Number: US-AMERICAN REGENT INC-2024002854

PATIENT
  Age: 67 Year
  Sex: Female

DRUGS (7)
  1. VENOFER [Suspect]
     Active Substance: IRON SUCROSE
     Indication: Product used for unknown indication
     Dosage: 50 MILLIGRAM, SINGLE
     Route: 042
     Dates: start: 20240702, end: 20240702
  2. VENOFER [Suspect]
     Active Substance: IRON SUCROSE
     Dosage: 50 MILLIGRAM, SINGLE
     Route: 042
     Dates: start: 20240709, end: 20240709
  3. VENOFER [Suspect]
     Active Substance: IRON SUCROSE
     Dosage: 50 MILLIGRAM (ON HOLD)
     Route: 042
     Dates: start: 20240716, end: 20240716
  4. VENOFER [Suspect]
     Active Substance: IRON SUCROSE
     Dosage: EVERY OTHER WEEK
     Route: 042
     Dates: start: 202407
  5. CABOMETYX [Suspect]
     Active Substance: CABOZANTINIB S-MALATE
     Indication: Renal cancer
     Dosage: 40 MILLIGRAM, QD
     Route: 048
  6. CABOMETYX [Suspect]
     Active Substance: CABOZANTINIB S-MALATE
     Dosage: 40 MILLIGRAM, QD
     Route: 048
     Dates: start: 20240701
  7. MIRCERA [Concomitant]
     Active Substance: METHOXY POLYETHYLENE GLYCOL-EPOETIN BETA
     Indication: Product used for unknown indication
     Dosage: UNK, ONCE A WEEK
     Route: 065
     Dates: start: 202407

REACTIONS (7)
  - Dialysis [Unknown]
  - Mineral supplementation [Unknown]
  - Dialysis related complication [Unknown]
  - Illness [Unknown]
  - Blood pressure decreased [Unknown]
  - Vomiting [Unknown]
  - Diarrhoea [Unknown]

NARRATIVE: CASE EVENT DATE: 20231101
